FAERS Safety Report 14646570 (Version 1)
Quarter: 2018Q1

REPORT INFORMATION
  Report Type: Spontaneous
  Country: US (occurrence: US)
  Receive Date: 20180315
  Receipt Date: 20180315
  Transmission Date: 20180509
  Serious: Yes (Other)
  Sender: FDA-Public Use
  Company Number: None

PATIENT
  Age: 58 Year
  Sex: Female
  Weight: 74.25 kg

DRUGS (16)
  1. IBUPROFEN. [Concomitant]
     Active Substance: IBUPROFEN
  2. METFORMIN [Concomitant]
     Active Substance: METFORMIN HYDROCHLORIDE
  3. XGEVA [Concomitant]
     Active Substance: DENOSUMAB
  4. CALCIUM 600 +D [Concomitant]
  5. FUROSEMIDE. [Concomitant]
     Active Substance: FUROSEMIDE
  6. FERROUS GLUCONATE [Concomitant]
     Active Substance: FERROUS GLUCONATE
  7. FASLODEX [Concomitant]
     Active Substance: FULVESTRANT
  8. PROCRIT [Concomitant]
     Active Substance: ERYTHROPOIETIN
  9. CRESTOR [Concomitant]
     Active Substance: ROSUVASTATIN CALCIUM
  10. ASPIRIN. [Concomitant]
     Active Substance: ASPIRIN
  11. POTASSIUM CHLORIDE ER [Concomitant]
     Active Substance: POTASSIUM CHLORIDE
  12. LISINOPRIL. [Concomitant]
     Active Substance: LISINOPRIL
  13. MAGOX [Concomitant]
  14. CAPECITABINE. [Suspect]
     Active Substance: CAPECITABINE
     Indication: BREAST CANCER
     Route: 048
     Dates: start: 20170627
  15. CARVEDILOL. [Concomitant]
     Active Substance: CARVEDILOL
  16. PACLITAXEL. [Concomitant]
     Active Substance: PACLITAXEL

REACTIONS (1)
  - Disease progression [None]
